FAERS Safety Report 6985721-9 (Version None)
Quarter: 2010Q3

REPORT INFORMATION
  Report Type: 
  Country: None (occurrence: None)
  Receive Date: 20100913
  Receipt Date: 20100902
  Transmission Date: 20110219
  Serious: Yes (Other)
  Sender: FDA-Public Use
  Company Number: 2010US003564

PATIENT
  Age: 67 Year
  Sex: Male

DRUGS (3)
  1. PROGRAF [Suspect]
     Indication: STEM CELL TRANSPLANT
     Dosage: 1. 5 MG, UID/QD, 0.5 MG, UID/QD,
  2. PREDNISONE [Suspect]
     Indication: STEM CELL TRANSPLANT
     Dosage: 80 MG, UID/QD,  10 MG, UID/QD, 5 MG, UID/QD,
  3. MYCOPHENOLATE MOFETIL [Suspect]
     Indication: STEM CELL TRANSPLANT
     Dosage: 2000 MG, UID;QD, 1000 MG, UID;QD,

REACTIONS (2)
  - NEUTROPHIL PELGER-HUET ANOMALY PRESENT [None]
  - PANCYTOPENIA [None]
